FAERS Safety Report 6131859-8 (Version None)
Quarter: 2009Q1

REPORT INFORMATION
  Report Type: 
  Country: None (occurrence: None)
  Receive Date: 20090325
  Receipt Date: 20090316
  Transmission Date: 20090719
  Serious: Yes (Other)
  Sender: FDA-Public Use
  Company Number: DE-JNJCH-2009007363

PATIENT
  Age: 29 Year
  Sex: Male

DRUGS (1)
  1. KIRKLAND SIGNATURE 5% [Suspect]
     Indication: ALOPECIA
     Dosage: TEXT:1 ML TWICE A DAY
     Route: 061

REACTIONS (2)
  - ALOPECIA [None]
  - PRODUCT COUNTERFEIT [None]
